FAERS Safety Report 8533329-6 (Version None)
Quarter: 2012Q3

REPORT INFORMATION
  Report Type: 
  Country: None (occurrence: None)
  Receive Date: 20120724
  Receipt Date: 20120719
  Transmission Date: 20120928
  Serious: Yes (Hospitalization, Other)
  Sender: FDA-Public Use
  Company Number: US-SANOFI-AVENTIS-2012SA034094

PATIENT
  Age: 54 Year
  Sex: Male
  Weight: 96.5 kg

DRUGS (3)
  1. CARBOPLATIN [Suspect]
     Dosage: DOSE: 6 AUC OVER 30 MINUTES ON DAY 1
     Route: 042
     Dates: start: 20120330
  2. BEVACIZUMAB [Suspect]
     Dosage: OVER 30-90 MIN, DAY 1
     Route: 042
     Dates: start: 20120330
  3. DOCETAXEL [Suspect]
     Route: 042
     Dates: start: 20120330

REACTIONS (6)
  - HAEMORRHAGE INTRACRANIAL [None]
  - FEBRILE NEUTROPENIA [None]
  - HYPERTENSION [None]
  - EYE PAIN [None]
  - HEADACHE [None]
  - NEUTROPHIL COUNT DECREASED [None]
